FAERS Safety Report 7990547-3 (Version None)
Quarter: 2011Q4

REPORT INFORMATION
  Report Type: 
  Country: None (occurrence: None)
  Receive Date: 20111219
  Receipt Date: 20110218
  Transmission Date: 20120403
  Serious: No
  Sender: FDA-Public Use
  Company Number: US-ASTRAZENECA-2010SE56777

PATIENT
  Age: 68 Year
  Sex: Female

DRUGS (9)
  1. CRESTOR [Suspect]
     Route: 048
     Dates: start: 20101124, end: 20101130
  2. EFFEXOR [Concomitant]
  3. SPIRIVA [Concomitant]
  4. TAMOXIFEN [Concomitant]
  5. KLONOPIN [Concomitant]
  6. PROTONIX [Concomitant]
  7. CRESTOR [Suspect]
     Indication: HYPERCHOLESTEROLAEMIA
     Route: 048
     Dates: start: 20100201, end: 20101123
  8. CRESTOR [Suspect]
     Route: 048
  9. PLAVIX [Concomitant]

REACTIONS (2)
  - HYPERHIDROSIS [None]
  - INSOMNIA [None]
